FAERS Safety Report 10039472 (Version 1)
Quarter: 2014Q1

REPORT INFORMATION
  Report Type: Report from Study
  Country: CA (occurrence: CA)
  Receive Date: 20140326
  Receipt Date: 20140326
  Transmission Date: 20141002
  Serious: Yes (Hospitalization)
  Sender: FDA-Public Use
  Company Number: CA-JNJFOC-20140311111

PATIENT
  Age: 69 Year
  Sex: Male
  Weight: 65.3 kg

DRUGS (5)
  1. IRON [Suspect]
     Indication: PRODUCT USED FOR UNKNOWN INDICATION
     Route: 042
  2. TYLENOL [Concomitant]
     Indication: PREMEDICATION
     Route: 048
  3. BENADRYL [Concomitant]
     Indication: PREMEDICATION
     Route: 048
  4. HYDROCORTISONE [Concomitant]
     Indication: PREMEDICATION
     Route: 042
  5. REMICADE [Suspect]
     Indication: COLITIS ULCERATIVE
     Route: 042
     Dates: start: 20081113

REACTIONS (1)
  - Cardiac enzymes increased [Recovering/Resolving]
